FAERS Safety Report 20950330 (Version 6)
Quarter: 2022Q3

REPORT INFORMATION
  Report Type: Report from Study
  Country: IL (occurrence: None)
  Receive Date: 20220613
  Receipt Date: 20220810
  Transmission Date: 20221027
  Serious: Yes (Death, Hospitalization)
  Sender: FDA-Public Use
  Company Number: IL-Eisai Medical Research-EC-2022-116738

PATIENT
  Age: 75 Year
  Sex: Male
  Weight: 50.1 kg

DRUGS (7)
  1. LENVATINIB [Suspect]
     Active Substance: LENVATINIB
     Indication: Metastatic malignant melanoma
     Route: 048
     Dates: start: 20220518, end: 20220605
  2. LENVATINIB [Suspect]
     Active Substance: LENVATINIB
     Indication: Metastases to central nervous system
     Route: 048
     Dates: start: 20220620, end: 20220710
  3. LENVATINIB [Suspect]
     Active Substance: LENVATINIB
     Route: 048
     Dates: start: 20220712, end: 20220712
  4. PEMBROLIZUMAB [Suspect]
     Active Substance: PEMBROLIZUMAB
     Indication: Metastatic malignant melanoma
     Route: 041
     Dates: start: 20220518, end: 20220518
  5. PEMBROLIZUMAB [Suspect]
     Active Substance: PEMBROLIZUMAB
     Indication: Metastases to central nervous system
  6. NOVORAPID [Concomitant]
     Active Substance: INSULIN ASPART
     Dates: start: 20211116
  7. BASAGLAR [Concomitant]
     Active Substance: INSULIN GLARGINE
     Dates: start: 20211116

REACTIONS (2)
  - Haemorrhage intracranial [Fatal]
  - Brain oedema [Recovered/Resolved]

NARRATIVE: CASE EVENT DATE: 20220605
